FAERS Safety Report 7655244-2 (Version None)
Quarter: 2011Q3

REPORT INFORMATION
  Report Type: 
  Country: None (occurrence: None)
  Receive Date: 20110729
  Receipt Date: 20110722
  Transmission Date: 20111222
  Serious: Yes (Other)
  Sender: FDA-Public Use
  Company Number: 2011SP034591

PATIENT
  Age: 47 Year
  Sex: Female

DRUGS (9)
  1. NEURONTIN [Concomitant]
  2. SAPHRIS [Suspect]
     Indication: BIPOLAR DISORDER
     Dosage: 10 MG, BID, SL
     Route: 060
     Dates: end: 20110701
  3. XANAX [Concomitant]
  4. LEXAPRO [Concomitant]
  5. LORTAB [Concomitant]
  6. LITHIUM CARBONATE [Concomitant]
  7. FLEXERIL [Concomitant]
  8. PRILOSEC [Concomitant]
  9. CELEBREX [Concomitant]

REACTIONS (5)
  - DIZZINESS [None]
  - FEELING ABNORMAL [None]
  - MEMORY IMPAIRMENT [None]
  - HEAD INJURY [None]
  - GAIT DISTURBANCE [None]
